FAERS Safety Report 8206414-6 (Version None)
Quarter: 2012Q1

REPORT INFORMATION
  Report Type: 
  Country: None (occurrence: None)
  Receive Date: 20120313
  Receipt Date: 20120307
  Transmission Date: 20120608
  Serious: Yes (Hospitalization, Other)
  Sender: FDA-Public Use
  Company Number: PHEH2012US005245

PATIENT
  Sex: Female

DRUGS (11)
  1. ZEMPLAR [Concomitant]
     Dosage: 1 UG, DAILY
  2. CALTRATE + D                       /01721501/ [Concomitant]
     Dosage: 1 DF, DAILY
  3. LIPITOR [Concomitant]
     Dosage: 10 MG,DAILY
  4. MAGNESIUM OXIDE [Concomitant]
     Dosage: 400 MG, DAILY
  5. NEORAL [Suspect]
     Dosage: 125 MG, DAILY (75 MG MORNING, 50 MG AT NIGHT)
  6. ATENOLOL [Concomitant]
     Dosage: 75 MG, DAILY
  7. MYFORTIC [Suspect]
     Dosage: 360 MG, BID
     Route: 048
  8. COZAAR [Concomitant]
     Dosage: 50 MG, DAILY
  9. NORVASC [Concomitant]
     Indication: HYPERTENSION
     Dosage: 2.5 MG, DAILY
  10. ASPIRIN [Concomitant]
     Dosage: 81 MG, DAILY
  11. PREDNISONE TAB [Concomitant]
     Dosage: 5 MG, DAILY

REACTIONS (8)
  - DEHYDRATION [None]
  - HYPOTENSION [None]
  - GASTROENTERITIS VIRAL [None]
  - DIARRHOEA [None]
  - RENAL FAILURE CHRONIC [None]
  - HEADACHE [None]
  - NAUSEA [None]
  - VOMITING [None]
